FAERS Safety Report 7623035-4 (Version None)
Quarter: 2011Q3

REPORT INFORMATION
  Report Type: 
  Country: None (occurrence: None)
  Receive Date: 20110720
  Receipt Date: 20110712
  Transmission Date: 20111222
  Serious: Yes (Other)
  Sender: FDA-Public Use
  Company Number: GB-PFIZER INC-2011157010

PATIENT
  Age: 71 Year
  Sex: Male

DRUGS (3)
  1. MEROPENEM [Suspect]
     Indication: PARASPINAL ABSCESS
     Route: 042
  2. PIPERACILLIN AND TAZOBACTAM [Concomitant]
     Indication: PARASPINAL ABSCESS
     Route: 042
  3. VANCOMYCIN HCL [Suspect]
     Indication: PARASPINAL ABSCESS

REACTIONS (1)
  - DRUG RASH WITH EOSINOPHILIA AND SYSTEMIC SYMPTOMS [None]
